FAERS Safety Report 25852693 (Version 2)
Quarter: 2025Q3

REPORT INFORMATION
  Report Type: Report from Study
  Country: EU (occurrence: EU)
  Receive Date: 20250926
  Receipt Date: 20250930
  Transmission Date: 20251020
  Serious: Yes (Hospitalization, Other)
  Sender: MYLAN
  Company Number: EU-GLAXOSMITHKLINE-FR2024GSK089453

PATIENT
  Age: 70 Year
  Sex: Female
  Weight: 66 kg

DRUGS (56)
  1. PACLITAXEL [Suspect]
     Active Substance: PACLITAXEL
     Indication: Endometrial cancer recurrent
     Dosage: 175 MILLIGRAM/SQ. METER, Q3W
     Dates: start: 20240606, end: 20250721
  2. PACLITAXEL [Suspect]
     Active Substance: PACLITAXEL
     Dosage: 175 MILLIGRAM/SQ. METER, Q3W
     Route: 042
     Dates: start: 20240606, end: 20250721
  3. PACLITAXEL [Suspect]
     Active Substance: PACLITAXEL
     Dosage: 175 MILLIGRAM/SQ. METER, Q3W
     Route: 042
     Dates: start: 20240606, end: 20250721
  4. PACLITAXEL [Suspect]
     Active Substance: PACLITAXEL
     Dosage: 175 MILLIGRAM/SQ. METER, Q3W
     Dates: start: 20240606, end: 20250721
  5. CARBOPLATIN [Suspect]
     Active Substance: CARBOPLATIN
     Indication: Endometrial cancer recurrent
     Dosage: 470 MILLIGRAM, Q3W
     Dates: start: 20240606, end: 20250721
  6. CARBOPLATIN [Suspect]
     Active Substance: CARBOPLATIN
     Dosage: 470 MILLIGRAM, Q3W
     Route: 042
     Dates: start: 20240606, end: 20250721
  7. CARBOPLATIN [Suspect]
     Active Substance: CARBOPLATIN
     Dosage: 470 MILLIGRAM, Q3W
     Route: 042
     Dates: start: 20240606, end: 20250721
  8. CARBOPLATIN [Suspect]
     Active Substance: CARBOPLATIN
     Dosage: 470 MILLIGRAM, Q3W
     Dates: start: 20240606, end: 20250721
  9. DOSTARLIMAB [Suspect]
     Active Substance: DOSTARLIMAB
     Indication: Endometrial cancer recurrent
     Dosage: 500 MILLIGRAM, Q3W
     Dates: start: 20240606, end: 20250721
  10. DOSTARLIMAB [Suspect]
     Active Substance: DOSTARLIMAB
     Dosage: 500 MILLIGRAM, Q3W
     Route: 042
     Dates: start: 20240606, end: 20250721
  11. DOSTARLIMAB [Suspect]
     Active Substance: DOSTARLIMAB
     Dosage: 500 MILLIGRAM, Q3W
     Route: 042
     Dates: start: 20240606, end: 20250721
  12. DOSTARLIMAB [Suspect]
     Active Substance: DOSTARLIMAB
     Dosage: 500 MILLIGRAM, Q3W
     Dates: start: 20240606, end: 20250721
  13. APREPITANT [Concomitant]
     Active Substance: APREPITANT
     Indication: Prophylaxis of nausea and vomiting
  14. APREPITANT [Concomitant]
     Active Substance: APREPITANT
     Route: 048
  15. APREPITANT [Concomitant]
     Active Substance: APREPITANT
     Route: 048
  16. APREPITANT [Concomitant]
     Active Substance: APREPITANT
  17. XANAX [Concomitant]
     Active Substance: ALPRAZOLAM
     Indication: Anxiety
  18. XANAX [Concomitant]
     Active Substance: ALPRAZOLAM
     Route: 065
  19. XANAX [Concomitant]
     Active Substance: ALPRAZOLAM
     Route: 065
  20. XANAX [Concomitant]
     Active Substance: ALPRAZOLAM
  21. DEXAMETHASONE [Concomitant]
     Active Substance: DEXAMETHASONE
     Indication: Allergy prophylaxis
  22. DEXAMETHASONE [Concomitant]
     Active Substance: DEXAMETHASONE
     Route: 042
  23. DEXAMETHASONE [Concomitant]
     Active Substance: DEXAMETHASONE
     Route: 042
  24. DEXAMETHASONE [Concomitant]
     Active Substance: DEXAMETHASONE
  25. PEGFILGRASTIM [Concomitant]
     Active Substance: PEGFILGRASTIM
     Indication: Colony stimulating factor therapy
  26. PEGFILGRASTIM [Concomitant]
     Active Substance: PEGFILGRASTIM
     Route: 065
  27. PEGFILGRASTIM [Concomitant]
     Active Substance: PEGFILGRASTIM
     Route: 065
  28. PEGFILGRASTIM [Concomitant]
     Active Substance: PEGFILGRASTIM
  29. DEXCHLORPHENIRAMINE [Concomitant]
     Active Substance: DEXCHLORPHENIRAMINE
     Indication: Allergy prophylaxis
  30. DEXCHLORPHENIRAMINE [Concomitant]
     Active Substance: DEXCHLORPHENIRAMINE
     Route: 042
  31. DEXCHLORPHENIRAMINE [Concomitant]
     Active Substance: DEXCHLORPHENIRAMINE
     Route: 042
  32. DEXCHLORPHENIRAMINE [Concomitant]
     Active Substance: DEXCHLORPHENIRAMINE
  33. PREDNISONE [Concomitant]
     Active Substance: PREDNISONE
     Indication: Prophylaxis of nausea and vomiting
     Dosage: 60 MILLIGRAM, QD
     Dates: start: 20240608
  34. PREDNISONE [Concomitant]
     Active Substance: PREDNISONE
     Indication: Premedication
     Dosage: 60 MILLIGRAM, QD
     Dates: start: 20240608
  35. PREDNISONE [Concomitant]
     Active Substance: PREDNISONE
     Dosage: 60 MILLIGRAM, QD
     Dates: start: 20240608
  36. PREDNISONE [Concomitant]
     Active Substance: PREDNISONE
     Dosage: 60 MILLIGRAM, QD
     Dates: start: 20240608
  37. PREDNISONE [Concomitant]
     Active Substance: PREDNISONE
     Dosage: 20 MILLIGRAM, QD
     Dates: start: 20250514, end: 20250516
  38. PREDNISONE [Concomitant]
     Active Substance: PREDNISONE
     Dosage: 20 MILLIGRAM, QD
     Dates: start: 20250514, end: 20250516
  39. PREDNISONE [Concomitant]
     Active Substance: PREDNISONE
     Dosage: 20 MILLIGRAM, QD
     Dates: start: 20250514, end: 20250516
  40. PREDNISONE [Concomitant]
     Active Substance: PREDNISONE
     Dosage: 20 MILLIGRAM, QD
     Dates: start: 20250514, end: 20250516
  41. METOCLOPRAMIDE [Concomitant]
     Active Substance: METOCLOPRAMIDE
     Indication: Prophylaxis of nausea and vomiting
  42. METOCLOPRAMIDE [Concomitant]
     Active Substance: METOCLOPRAMIDE
     Route: 065
  43. METOCLOPRAMIDE [Concomitant]
     Active Substance: METOCLOPRAMIDE
     Route: 065
  44. METOCLOPRAMIDE [Concomitant]
     Active Substance: METOCLOPRAMIDE
  45. ONDANSETRON [Concomitant]
     Active Substance: ONDANSETRON
     Indication: Prophylaxis of nausea and vomiting
  46. ONDANSETRON [Concomitant]
     Active Substance: ONDANSETRON
     Route: 048
  47. ONDANSETRON [Concomitant]
     Active Substance: ONDANSETRON
     Route: 048
  48. ONDANSETRON [Concomitant]
     Active Substance: ONDANSETRON
  49. ESOMEPRAZOLE [Concomitant]
     Active Substance: ESOMEPRAZOLE
     Indication: Gastrooesophageal reflux disease
     Dosage: 40 MILLIGRAM, QD
  50. ESOMEPRAZOLE [Concomitant]
     Active Substance: ESOMEPRAZOLE
     Dosage: 40 MILLIGRAM, QD
  51. ESOMEPRAZOLE [Concomitant]
     Active Substance: ESOMEPRAZOLE
     Dosage: 40 MILLIGRAM, QD
  52. ESOMEPRAZOLE [Concomitant]
     Active Substance: ESOMEPRAZOLE
     Dosage: 40 MILLIGRAM, QD
  53. GAVISCON [Concomitant]
     Active Substance: ALUMINUM HYDROXIDE\MAGNESIUM CARBONATE
     Indication: Gastrooesophageal reflux disease
     Dosage: 3 DOSAGE FORM, QD
  54. GAVISCON [Concomitant]
     Active Substance: ALUMINUM HYDROXIDE\MAGNESIUM CARBONATE
     Dosage: 3 DOSAGE FORM, QD
     Route: 065
  55. GAVISCON [Concomitant]
     Active Substance: ALUMINUM HYDROXIDE\MAGNESIUM CARBONATE
     Dosage: 3 DOSAGE FORM, QD
     Route: 065
  56. GAVISCON [Concomitant]
     Active Substance: ALUMINUM HYDROXIDE\MAGNESIUM CARBONATE
     Dosage: 3 DOSAGE FORM, QD

REACTIONS (8)
  - Gastritis [Recovering/Resolving]
  - Immune-mediated gastritis [Unknown]
  - Abdominal wall mass [Unknown]
  - Peritoneal neoplasm [Unknown]
  - Rash maculo-papular [Recovered/Resolved]
  - Omentectomy [Unknown]
  - Peritonectomy [Unknown]
  - Laparotomy [Unknown]

NARRATIVE: CASE EVENT DATE: 20240615
